APPROVED DRUG PRODUCT: EMTRICITABINE AND TENOFOVIR ALAFENAMIDE FUMARATE
Active Ingredient: EMTRICITABINE; TENOFOVIR ALAFENAMIDE FUMARATE
Strength: 200MG;EQ 25MG BASE
Dosage Form/Route: TABLET;ORAL
Application: A213926 | Product #001 | TE Code: AB
Applicant: LUPIN LTD
Approved: Dec 13, 2024 | RLD: No | RS: No | Type: RX